FAERS Safety Report 10100984 (Version 1)
Quarter: 2014Q2

REPORT INFORMATION
  Report Type: Spontaneous
  Country: US (occurrence: US)
  Receive Date: 20140424
  Receipt Date: 20140424
  Transmission Date: 20141212
  Serious: Yes (Other)
  Sender: FDA-Public Use
  Company Number: US-PFIZER INC-2014110381

PATIENT
  Age: 86 Year
  Sex: Female
  Weight: 53.06 kg

DRUGS (1)
  1. DETROL LA [Suspect]
     Dosage: 4 MG, DAILY
     Route: 048
     Dates: start: 201306

REACTIONS (1)
  - Dementia [Unknown]
